FAERS Safety Report 6125598-7 (Version None)
Quarter: 2009Q1

REPORT INFORMATION
  Report Type: 
  Country: None (occurrence: None)
  Receive Date: 20090320
  Receipt Date: 20090310
  Transmission Date: 20090719
  Serious: Yes (Other)
  Sender: FDA-Public Use
  Company Number: US-JNJFOC-20090302941

PATIENT
  Sex: Female

DRUGS (17)
  1. REMICADE [Suspect]
     Indication: CROHN'S DISEASE
     Route: 042
  2. ZOLOFT [Concomitant]
  3. ACIPHEX [Concomitant]
  4. METFORMIN HCL [Concomitant]
  5. CLARITIN [Concomitant]
  6. ASACOL [Concomitant]
  7. LEVOX [Concomitant]
  8. LAMICTAL [Concomitant]
  9. NEURONTIN [Concomitant]
  10. ATIVAN [Concomitant]
  11. LASIX [Concomitant]
  12. NORVASC [Concomitant]
  13. FIOROCET [Concomitant]
  14. BELLADONNA [Concomitant]
  15. MIRALAX [Concomitant]
  16. ABILIFY [Concomitant]
  17. TOPAMAX [Concomitant]

REACTIONS (2)
  - EPSTEIN-BARR VIRUS INFECTION [None]
  - LUPUS-LIKE SYNDROME [None]
